FAERS Safety Report 10895479 (Version 2)
Quarter: 2015Q2

REPORT INFORMATION
  Report Type: Spontaneous
  Country: US (occurrence: US)
  Receive Date: 20150306
  Receipt Date: 20150608
  Transmission Date: 20150821
  Serious: No
  Sender: FDA-Public Use
  Company Number: US-AMGEN-USASP2014055616

PATIENT
  Age: 86 Year
  Sex: Male
  Weight: 61.5 kg

DRUGS (7)
  1. VENOFER [Concomitant]
     Active Substance: IRON SUCROSE
     Indication: ANAEMIA
     Dosage: 50 MG, QWK
     Route: 042
  2. EPOGEN [Suspect]
     Active Substance: ERYTHROPOIETIN
     Indication: ANAEMIA
     Dosage: 2200 UNIT, Q2WK
     Route: 042
  3. SENSIPAR [Suspect]
     Active Substance: CINACALCET HYDROCHLORIDE
     Indication: HYPERPARATHYROIDISM SECONDARY
     Dosage: 30 MG, QD
     Route: 048
     Dates: start: 201402, end: 201405
  4. RENVELA [Concomitant]
     Active Substance: SEVELAMER CARBONATE
     Indication: BLOOD PHOSPHORUS INCREASED
     Dosage: UNK UNK, QD
     Route: 048
     Dates: end: 20140825
  5. HECTOROL [Concomitant]
     Active Substance: DOXERCALCIFEROL
     Indication: VITAMIN D DEFICIENCY
     Dosage: 3.5 MUG, Q3WK
     Route: 042
  6. RENA-VITE [Concomitant]
     Active Substance: VITAMINS
     Indication: NUTRITIONAL SUPPLEMENTATION
     Dosage: UNK UNK, QD
     Route: 048
  7. VELPHORO [Concomitant]
     Active Substance: FERRIC OXYHYDROXIDE
     Indication: BLOOD PHOSPHORUS INCREASED
     Dosage: UNK UNK, QD
     Route: 048

REACTIONS (3)
  - Urticaria [Recovered/Resolved]
  - Gastrointestinal disorder [Recovered/Resolved]
  - Rash [Recovered/Resolved]

NARRATIVE: CASE EVENT DATE: 201402
